FAERS Safety Report 11276130 (Version 1)
Quarter: 2015Q3

REPORT INFORMATION
  Report Type: Spontaneous
  Country: US (occurrence: None)
  Receive Date: 20150715
  Receipt Date: 20150715
  Transmission Date: 20151125
  Serious: Yes (Other)
  Sender: FDA-Public Use
  Company Number: None

PATIENT
  Age: 59 Year
  Sex: Female
  Weight: 77.57 kg

DRUGS (6)
  1. METOPROLOL XL [Concomitant]
     Active Substance: METOPROLOL
  2. CALCIUM [Concomitant]
     Active Substance: CALCIUM
  3. EXCEDRIN MIGRAINE [Concomitant]
     Active Substance: ACETAMINOPHEN\ASPIRIN\CAFFEINE
  4. ALEVE [Concomitant]
     Active Substance: NAPROXEN SODIUM
  5. VITAMIN D3 [Concomitant]
     Active Substance: CHOLECALCIFEROL
  6. IBANDRONATE SODIUM. [Suspect]
     Active Substance: IBANDRONATE SODIUM
     Indication: OSTEOPOROSIS PROPHYLAXIS
     Route: 048
     Dates: start: 20150712, end: 20150712

REACTIONS (9)
  - Arthralgia [None]
  - Gait disturbance [None]
  - Spinal disorder [None]
  - Sciatica [None]
  - Bedridden [None]
  - Pyrexia [None]
  - Musculoskeletal chest pain [None]
  - Pain in extremity [None]
  - Dysstasia [None]

NARRATIVE: CASE EVENT DATE: 20150712
